FAERS Safety Report 9198041 (Version 1)
Quarter: 2013Q1

REPORT INFORMATION
  Report Type: Spontaneous
  Country: US (occurrence: US)
  Receive Date: 20130328
  Receipt Date: 20130328
  Transmission Date: 20140127
  Serious: Yes (Life-Threatening, Hospitalization)
  Sender: FDA-Public Use
  Company Number: US-BAYER-2013-032663

PATIENT
  Age: 32 Year
  Sex: Female
  Weight: 74.38 kg

DRUGS (2)
  1. BAYER GENUINE ASPIRIN ORIGINAL STRENGTH [Suspect]
     Indication: BACK PAIN
     Dosage: 2 DF, BID
     Route: 048
     Dates: start: 1990, end: 1990
  2. IBUPROFEN [Suspect]

REACTIONS (4)
  - Dyspepsia [Not Recovered/Not Resolved]
  - Haemorrhage [None]
  - Apparent death [None]
  - Abdominal pain upper [None]
